FAERS Safety Report 6541081-9 (Version None)
Quarter: 2010Q1

REPORT INFORMATION
  Report Type: 
  Country: None (occurrence: None)
  Receive Date: 20100118
  Receipt Date: 20100108
  Transmission Date: 20100710
  Serious: Yes (Hospitalization)
  Sender: FDA-Public Use
  Company Number: US-BAYER-200941178NA

PATIENT
  Age: 43 Year
  Sex: Male

DRUGS (2)
  1. BETASERON [Suspect]
     Indication: MULTIPLE SCLEROSIS
     Route: 058
     Dates: start: 19950101, end: 19970101
  2. REBIF [Concomitant]

REACTIONS (4)
  - CONDITION AGGRAVATED [None]
  - INJECTION SITE SCAR [None]
  - MULTIPLE SCLEROSIS [None]
  - UNEVALUABLE EVENT [None]
